FAERS Safety Report 5397697-9 (Version None)
Quarter: 2007Q3

REPORT INFORMATION
  Report Type: 
  Country: None (occurrence: None)
  Receive Date: 20070726
  Receipt Date: 20070717
  Transmission Date: 20080115
  Serious: Yes (Life-Threatening, Hospitalization, Other)
  Sender: FDA-Public Use
  Company Number: US-AVENTIS-200710206US

PATIENT
  Sex: Male
  Weight: 101.6 kg

DRUGS (17)
  1. LOVENOX [Suspect]
     Indication: ACUTE CORONARY SYNDROME
     Dates: start: 20070107, end: 20070107
  2. LOVENOX [Suspect]
     Dates: start: 20070108, end: 20070108
  3. LOVENOX [Suspect]
     Indication: THROMBOSIS PROPHYLAXIS
     Dates: start: 20070107, end: 20070107
  4. LOVENOX [Suspect]
     Dates: start: 20070108, end: 20070108
  5. LOVENOX [Suspect]
     Indication: UNEVALUABLE EVENT
     Dates: start: 20070107, end: 20070107
  6. LOVENOX [Suspect]
     Dates: start: 20070108, end: 20070108
  7. METOPROLOL SUCCINATE [Suspect]
     Route: 048
     Dates: start: 20070107, end: 20070107
  8. TYLENOL (CAPLET) [Concomitant]
     Dosage: DOSE: UNK
  9. ASPIRIN [Concomitant]
     Dates: start: 20070108
  10. PLAVIX [Concomitant]
     Dates: start: 20070107
  11. TRICOR                             /00090101/ [Concomitant]
     Dates: start: 20070107
  12. SYNTHROID [Concomitant]
     Dates: start: 20070107
  13. LOPRESSOR [Concomitant]
  14. NIACIN [Concomitant]
     Dosage: DOSE QUANTITY: 500
  15. NITROGLYCERIN [Concomitant]
     Dates: start: 20070107
  16. CRESTOR [Concomitant]
     Dosage: DOSE QUANTITY: 20
  17. MAVIK [Concomitant]

REACTIONS (12)
  - BLOOD PRESSURE SYSTOLIC DECREASED [None]
  - BRADYCARDIA [None]
  - CARDIAC ARREST [None]
  - CHEST DISCOMFORT [None]
  - FEELING ABNORMAL [None]
  - FEELING HOT [None]
  - HAEMOGLOBIN DECREASED [None]
  - HYPOAESTHESIA [None]
  - NAUSEA [None]
  - PALLOR [None]
  - PARAESTHESIA [None]
  - SYNCOPE [None]
